FAERS Safety Report 5579983-2 (Version None)
Quarter: 2007Q4

REPORT INFORMATION
  Report Type: 
  Country: None (occurrence: None)
  Receive Date: 20071226
  Receipt Date: 20071219
  Transmission Date: 20080405
  Serious: Yes (Death)
  Sender: FDA-Public Use
  Company Number: WAES 0712USA08484

PATIENT
  Age: 69 Year
  Sex: Male

DRUGS (1)
  1. HYZAAR [Suspect]
     Indication: HYPERTENSION
     Dosage: 1 /DAILY PO
     Route: 048
     Dates: start: 20070406

REACTIONS (1)
  - DEATH [None]
